FAERS Safety Report 6877449-0 (Version None)
Quarter: 2010Q3

REPORT INFORMATION
  Report Type: 
  Country: None (occurrence: None)
  Receive Date: 20100727
  Receipt Date: 20100110
  Transmission Date: 20110219
  Serious: No
  Sender: FDA-Public Use
  Company Number: US-ABBOTT-10P-163-0619051-00

PATIENT
  Sex: Female
  Weight: 79.45 kg

DRUGS (3)
  1. SYNTHROID [Suspect]
     Indication: HYPOTHYROIDISM
     Route: 048
     Dates: start: 20091101, end: 20100109
  2. PRILOSEC [Concomitant]
     Indication: GASTROOESOPHAGEAL REFLUX DISEASE
     Route: 048
  3. SUSTAMEX  PROBIOTIC [Concomitant]
     Indication: MEDICAL DIET
     Route: 048
     Dates: start: 20091201

REACTIONS (6)
  - BRONCHIAL DISORDER [None]
  - CHEST DISCOMFORT [None]
  - COUGH [None]
  - PRURITUS [None]
  - SENSATION OF FOREIGN BODY [None]
  - WHEEZING [None]
